FAERS Safety Report 7927121-0 (Version None)
Quarter: 2011Q4

REPORT INFORMATION
  Report Type: 
  Country: None (occurrence: None)
  Receive Date: 20111116
  Receipt Date: 20111102
  Transmission Date: 20120403
  Serious: Yes (Other)
  Sender: FDA-Public Use
  Company Number: 1000025369

PATIENT
  Age: 59 Year
  Sex: Male
  Weight: 103 kg

DRUGS (13)
  1. ESCITALOPRAM OXALATE [Suspect]
     Dosage: ORAL
     Route: 048
     Dates: start: 20040101
  2. ISOMERIDE (DEXFENFLURAMINE HYDROCHLORIDE) [Suspect]
     Dosage: 2 DOSAGE FORM (2 DOSAGE FORMS, 1 IN 1 D), ORAL
     Dates: start: 19970101
  3. JANUVIA [Concomitant]
  4. SARTAN (LOSARTAN POTASSIUM) [Concomitant]
  5. TAMIK (DIHYDROERGOTAMIN MESILATE) (CASULES) [Suspect]
     Dosage: ORAL
     Route: 048
     Dates: start: 20040101
  6. BIGUANIDE (BIGUANIDE) [Concomitant]
  7. PONDERAL (FENFLURAMINE) [Suspect]
     Dosage: 2 DOSAGE FORM (2 DOSAGE FORMS, 1 IN 1 D). ORAL
     Route: 048
     Dates: end: 20020101
  8. PREDNISONE [Concomitant]
  9. DIURETIC (DIURETICS) [Concomitant]
  10. BONIVA [Concomitant]
  11. ARAVA [Concomitant]
  12. BETA BLOCKING AGENTS (BETA BLOCKING AGENTS) [Concomitant]
  13. MEDIATOR (BENFLUOREX HYDROCHLORIDE) (300 MILLIGRAM) [Suspect]
     Indication: TYPE 2 DIABETES MELLITUS
     Dosage: 300 MG (300 MG, 1 IN 1 D), ORAL
     Route: 048
     Dates: start: 20060101, end: 20081201

REACTIONS (9)
  - LEFT VENTRICULAR HYPERTROPHY [None]
  - DIARRHOEA [None]
  - IATROGENIC INJURY [None]
  - HYPERKINETIC HEART SYNDROME [None]
  - AORTIC VALVE CALCIFICATION [None]
  - LEFT ATRIAL DILATATION [None]
  - ADRENAL NEOPLASM [None]
  - EJECTION FRACTION DECREASED [None]
  - AORTIC VALVE INCOMPETENCE [None]
